FAERS Safety Report 25022283 (Version 1)
Quarter: 2025Q1

REPORT INFORMATION
  Report Type: Spontaneous
  Country: SE (occurrence: SE)
  Receive Date: 20250228
  Receipt Date: 20250228
  Transmission Date: 20250409
  Serious: Yes (Hospitalization, Other)
  Sender: ALEXION PHARMACEUTICALS
  Company Number: SE-ASTRAZENECA-202502GLO023275SE

PATIENT
  Age: 17 Year

DRUGS (6)
  1. OMEPRAZOLE [Suspect]
     Active Substance: OMEPRAZOLE
  2. LISDEXAMFETAMINE DIMESYLATE [Suspect]
     Active Substance: LISDEXAMFETAMINE DIMESYLATE
  3. PROPIOMAZINE [Suspect]
     Active Substance: PROPIOMAZINE
     Route: 065
  4. ATOMOXETINE HYDROCHLORIDE [Suspect]
     Active Substance: ATOMOXETINE HYDROCHLORIDE
     Route: 065
  5. SERTRALINE HYDROCHLORIDE [Suspect]
     Active Substance: SERTRALINE HYDROCHLORIDE
     Route: 065
  6. TRIMEPRAZINE [Suspect]
     Active Substance: TRIMEPRAZINE
     Route: 065

REACTIONS (2)
  - Intentional self-injury [Unknown]
  - Intentional overdose [Unknown]
